FAERS Safety Report 10063189 (Version 1)
Quarter: 2014Q2

REPORT INFORMATION
  Report Type: Spontaneous
  Country: US (occurrence: US)
  Receive Date: 20140407
  Receipt Date: 20140407
  Transmission Date: 20141212
  Serious: Yes (Other)
  Sender: FDA-Public Use
  Company Number: US-ASTELLAS-2014US003458

PATIENT
  Sex: Female

DRUGS (1)
  1. TARCEVA [Suspect]
     Indication: LUNG NEOPLASM MALIGNANT
     Dosage: 150 MG, UID/QD
     Route: 048
     Dates: start: 20140110, end: 20140331

REACTIONS (6)
  - Toxicity to various agents [Unknown]
  - Thirst [Not Recovered/Not Resolved]
  - Oral discomfort [Unknown]
  - Chapped lips [Unknown]
  - Dry mouth [Unknown]
  - Oral pain [Unknown]
